FAERS Safety Report 8509231-2 (Version None)
Quarter: 2012Q3

REPORT INFORMATION
  Report Type: 
  Country: None (occurrence: None)
  Receive Date: 20120713
  Receipt Date: 20120711
  Transmission Date: 20120928
  Serious: Yes (Hospitalization, Other)
  Sender: FDA-Public Use
  Company Number: US-PFIZER INC-2012061120

PATIENT
  Sex: Female
  Weight: 68.027 kg

DRUGS (12)
  1. FOLIC ACID [Concomitant]
     Dosage: UNK
  2. FUROSEMIDE [Concomitant]
     Indication: SWELLING
     Dosage: 40 MG, AS NEEDED
  3. RANITIDINE [Concomitant]
     Dosage: 150 MG, 2X/DAY
  4. CLONIDINE [Concomitant]
     Indication: ATRIAL FIBRILLATION
     Dosage: 0.1 MG, 2X/DAY
  5. WARFARIN [Concomitant]
     Indication: THROMBOSIS
     Dosage: ^04MG^
  6. TRAMADOL [Concomitant]
     Indication: FIBROMYALGIA
     Dosage: 50 MG TWO TO THREE TIMES A DAY AS NEEDED
  7. TRAZODONE [Concomitant]
     Dosage: 50 MG, AS NEEDED
  8. VITAMIN B6 [Concomitant]
     Dosage: UNK
  9. LYRICA [Suspect]
     Indication: FIBROMYALGIA
     Dosage: 75 MG, 2X/DAY
     Dates: end: 20120401
  10. NIFEDIPINE [Concomitant]
     Dosage: 90 MG, DAILY
  11. PRAVASTATIN [Concomitant]
     Dosage: 20 MG, DAILY
  12. CLONAZEPAM [Concomitant]
     Indication: NERVOUS SYSTEM DISORDER
     Dosage: ^02 MG^, AS NEEDED

REACTIONS (3)
  - PAIN [None]
  - THERMAL BURN [None]
  - SCAR [None]
